FAERS Safety Report 5134127-6 (Version None)
Quarter: 2006Q4

REPORT INFORMATION
  Report Type: 
  Country: None (occurrence: None)
  Receive Date: 20061024
  Receipt Date: 20050217
  Transmission Date: 20070319
  Serious: Yes (Hospitalization, Disabling)
  Sender: FDA-Public Use
  Company Number: FRWYE438518FEB05

PATIENT
  Sex: Female
  Weight: 51 kg

DRUGS (4)
  1. ENBREL [Suspect]
     Indication: ANKYLOSING SPONDYLITIS
     Route: 058
     Dates: start: 20041105, end: 20050104
  2. PURINETHOL [Suspect]
     Route: 048
     Dates: start: 20041105, end: 20050104
  3. BETAMETHASONE [Concomitant]
     Route: 061
  4. CORTICOSTEROID NOS [Concomitant]
     Route: 061

REACTIONS (4)
  - DEAFNESS NEUROSENSORY [None]
  - DEMYELINATION [None]
  - DERMATITIS PSORIASIFORM [None]
  - DRUG INEFFECTIVE [None]
